FAERS Safety Report 25167746 (Version 1)
Quarter: 2025Q2

REPORT INFORMATION
  Report Type: Spontaneous
  Country: GB (occurrence: GB)
  Receive Date: 20250407
  Receipt Date: 20250407
  Transmission Date: 20250717
  Serious: Yes (Other)
  Sender: PFIZER
  Company Number: None

PATIENT
  Age: 56 Year
  Sex: Female
  Weight: 129 kg

DRUGS (3)
  1. MEDROXYPROGESTERONE ACETATE [Suspect]
     Active Substance: MEDROXYPROGESTERONE ACETATE
     Indication: Endometrial hyperplasia
     Dosage: 10 MG, 2X/DAY
     Dates: start: 20250226
  2. ASPIRIN [Concomitant]
     Active Substance: ASPIRIN
     Indication: Antiphospholipid syndrome
  3. AMLODIPINE [Concomitant]
     Active Substance: AMLODIPINE BESYLATE
     Indication: Hypertension

REACTIONS (1)
  - Tachycardia [Recovering/Resolving]

NARRATIVE: CASE EVENT DATE: 20250331
